FAERS Safety Report 21933526 (Version 1)
Quarter: 2023Q1

REPORT INFORMATION
  Report Type: Report from Study
  Country: US (occurrence: US)
  Receive Date: 20230201
  Receipt Date: 20230201
  Transmission Date: 20230417
  Serious: Yes (Other)
  Sender: FDA-Public Use
  Company Number: US-ABBVIE-4289567

PATIENT
  Sex: Female

DRUGS (2)
  1. RINVOQ [Suspect]
     Active Substance: UPADACITINIB
     Indication: Product used for unknown indication
     Route: 048
  2. VITAMIN D3 25 MG [Concomitant]
     Indication: Product used for unknown indication
     Route: 048

REACTIONS (5)
  - Cholecystectomy [Unknown]
  - Blindness [Unknown]
  - Ear pain [Unknown]
  - Colectomy [Unknown]
  - Sputum increased [Unknown]
